FAERS Safety Report 4987281-0 (Version None)
Quarter: 2006Q2

REPORT INFORMATION
  Report Type: 
  Country: None (occurrence: None)
  Receive Date: 20060501
  Receipt Date: 20041108
  Transmission Date: 20061013
  Serious: Yes (Hospitalization)
  Sender: FDA-Public Use
  Company Number: US-MERCK-0411USA01547

PATIENT
  Age: 64 Year
  Sex: Female
  Weight: 60 kg

DRUGS (4)
  1. VIOXX [Suspect]
     Indication: OSTEOARTHRITIS
     Route: 048
     Dates: start: 19990601, end: 20040501
  2. VIOXX [Suspect]
     Route: 048
     Dates: start: 19990601, end: 20040501
  3. VIOXX [Suspect]
     Indication: BURSITIS
     Route: 048
     Dates: start: 19990601, end: 20040501
  4. VIOXX [Suspect]
     Route: 048
     Dates: start: 19990601, end: 20040501

REACTIONS (7)
  - BACK DISORDER [None]
  - GASTRITIS [None]
  - HYPERTENSION [None]
  - HYPOAESTHESIA [None]
  - NON-CARDIAC CHEST PAIN [None]
  - PLEUROPERICARDITIS [None]
  - TRANSIENT ISCHAEMIC ATTACK [None]
